FAERS Safety Report 5016904-5 (Version None)
Quarter: 2006Q2

REPORT INFORMATION
  Report Type: 
  Country: None (occurrence: None)
  Receive Date: 20060526
  Receipt Date: 20060517
  Transmission Date: 20061013
  Serious: Yes (Death)
  Sender: FDA-Public Use
  Company Number: 145839USA

PATIENT
  Age: 62 Year
  Sex: Male

DRUGS (1)
  1. CLOZAPINE [Suspect]
     Indication: SCHIZOAFFECTIVE DISORDER
     Dosage: 350 MILLIGRAM DAILY
     Dates: start: 20051001

REACTIONS (3)
  - INFECTION [None]
  - LEUKOPENIA [None]
  - RENAL FAILURE [None]
